FAERS Safety Report 8588645 (Version 2)
Quarter: 2014Q1

REPORT INFORMATION
  Report Type: Spontaneous
  Country: US (occurrence: US)
  Receive Date: 20120531
  Receipt Date: 20140123
  Transmission Date: 20141002
  Serious: Yes (Other)
  Sender: FDA-Public Use
  Company Number: US-B.I. PHARMACEUTICALS,INC./RIDGEFIELD-2012-BP-12551BP

PATIENT
  Sex: Female

DRUGS (2)
  1. PRADAXA [Suspect]
     Indication: ATRIAL FIBRILLATION
     Dates: start: 20110404
  2. PRADAXA [Suspect]
     Indication: ANTICOAGULANT THERAPY

REACTIONS (2)
  - Gastrointestinal haemorrhage [Unknown]
  - Ulcer haemorrhage [Unknown]
